FAERS Safety Report 14159802 (Version 4)
Quarter: 2018Q1

REPORT INFORMATION
  Report Type: Spontaneous
  Country: US (occurrence: US)
  Receive Date: 20171106
  Receipt Date: 20180219
  Transmission Date: 20180508
  Serious: No
  Sender: FDA-Public Use
  Company Number: US-PFIZER INC-2017220367

PATIENT
  Age: 54 Year
  Sex: Female

DRUGS (1)
  1. IBRANCE [Suspect]
     Active Substance: PALBOCICLIB
     Indication: BREAST CANCER FEMALE
     Dosage: 75 MG, CYCLIC (ONCE DAILY WITH FOOD FOR 21 DAYS ON, 7 DAYS OFF)
     Route: 048

REACTIONS (3)
  - Bone pain [Unknown]
  - Nausea [Unknown]
  - Neuropathy peripheral [Unknown]
